FAERS Safety Report 23116741 (Version 1)
Quarter: 2023Q4

REPORT INFORMATION
  Report Type: Spontaneous
  Country: CO (occurrence: CO)
  Receive Date: 20231027
  Receipt Date: 20231027
  Transmission Date: 20240109
  Serious: Yes (Hospitalization, Other)
  Sender: FDA-Public Use
  Company Number: CO-BAXTER-2023BAX034029

PATIENT
  Age: 33 Year
  Sex: Female
  Weight: 60 kg

DRUGS (13)
  1. CYCLOPHOSPHAMIDE [Suspect]
     Active Substance: CYCLOPHOSPHAMIDE
     Indication: Lupus nephritis
     Dosage: 500 MG, MONTHLY FOR 6 MONTHS (6 DOSES)
     Route: 042
  2. MESNA [Suspect]
     Active Substance: MESNA
     Indication: Lupus nephritis
     Dosage: 400 MG, AT A TIME (0 HOURS - 4 HOURS AND 8 HOURS), TOTAL ADMINISTERED DOSES OF MESNA: 2000 MG (5 DOS
     Route: 042
  3. METHYLPREDNISOLONE [Suspect]
     Active Substance: METHYLPREDNISOLONE
     Indication: Lupus nephritis
     Dosage: 1G FOR 3 DAYS
     Route: 042
  4. PREDNISOLONE [Suspect]
     Active Substance: PREDNISOLONE
     Indication: Lupus nephritis
     Dosage: 1MG/KG/DAY WITH A PROGRESSIVE DECREASE OF 25% EVERY 4 WEEKS
     Route: 065
  5. POTASSIUM CHLORIDE [Concomitant]
     Active Substance: POTASSIUM CHLORIDE
     Dosage: 3 MEQ EVERY 24 HOURS, 20 MEQ AMPOULE 10 ML
     Route: 042
  6. MAGNESIUM SULFATE [Concomitant]
     Active Substance: MAGNESIUM SULFATE\MAGNESIUM SULFATE HEPTAHYDRATE
     Dosage: 2 G EVERY 24 HOURS, 20 % AMPOULE 10 ML
     Route: 042
  7. PREDNISONE [Concomitant]
     Active Substance: PREDNISONE
     Dosage: 50 MG EVERY 24 HOURS
     Route: 048
  8. SUCRALFATE [Concomitant]
     Active Substance: SUCRALFATE
     Dosage: 1 G EVERY 8 HOURS
     Route: 048
  9. FUROSEMIDE [Concomitant]
     Active Substance: FUROSEMIDE
     Dosage: 40 MG EVERY 24 HOURS
     Route: 048
  10. CALCITRIOL [Concomitant]
     Active Substance: CALCITRIOL
     Dosage: 0,25 MCG, EVERY 24 HOURS
     Route: 048
  11. HYDROXYCHLOROQUINE [Concomitant]
     Active Substance: HYDROXYCHLOROQUINE
     Dosage: 200 MG, EVERY 24 HOURS
     Route: 048
  12. VERAPAMIL [Concomitant]
     Active Substance: VERAPAMIL HYDROCHLORIDE
     Dosage: 80 MG EVERY 24 HOURS
     Route: 048
  13. ATORVASTATIN [Concomitant]
     Active Substance: ATORVASTATIN
     Dosage: 40 MG EVERY 24 HOURS
     Route: 048

REACTIONS (6)
  - Hypokalaemia [Unknown]
  - Overdose [Recovered/Resolved]
  - Insomnia [Recovered/Resolved]
  - Generalised oedema [Recovered/Resolved]
  - Abdominal pain [Recovered/Resolved]
  - Nausea [Recovered/Resolved]

NARRATIVE: CASE EVENT DATE: 20231010
